FAERS Safety Report 7448352-2 (Version None)
Quarter: 2011Q2

REPORT INFORMATION
  Report Type: 
  Country: None (occurrence: None)
  Receive Date: 20110429
  Receipt Date: 20100512
  Transmission Date: 20111010
  Serious: No
  Sender: FDA-Public Use
  Company Number: US-ASTRAZENECA-2010SE21698

PATIENT
  Age: 59 Year
  Sex: Female
  Weight: 113.4 kg

DRUGS (8)
  1. METOPROLOL SUCCINATE [Concomitant]
  2. LASIX [Concomitant]
  3. ACYCLOVIR [Concomitant]
  4. VITAMIN D [Concomitant]
  5. NEXIUM [Suspect]
     Indication: GASTROOESOPHAGEAL REFLUX DISEASE
     Route: 048
     Dates: start: 20100401
  6. LISINOPRIL [Concomitant]
  7. FLAX SEED OIL [Concomitant]
  8. DAPSON [Concomitant]

REACTIONS (3)
  - MYALGIA [None]
  - BLOOD CALCIUM DECREASED [None]
  - BONE PAIN [None]
